FAERS Safety Report 23750058 (Version 2)
Quarter: 2025Q1

REPORT INFORMATION
  Report Type: Spontaneous
  Country: CA (occurrence: CA)
  Receive Date: 20240417
  Receipt Date: 20250317
  Transmission Date: 20250409
  Serious: Yes (Other)
  Sender: ACCORD
  Company Number: None

PATIENT
  Age: 29 Year
  Sex: Female

DRUGS (5)
  1. QUETIAPINE FUMARATE [Suspect]
     Active Substance: QUETIAPINE FUMARATE
     Indication: Bipolar I disorder
  2. LEVOTHYROXINE SODIUM [Suspect]
     Active Substance: LEVOTHYROXINE SODIUM
     Indication: Hypothyroidism
  3. OLANZAPINE [Suspect]
     Active Substance: OLANZAPINE
     Indication: Mania
  4. QUETIAPINE FUMARATE [Suspect]
     Active Substance: QUETIAPINE FUMARATE
     Indication: Bipolar I disorder
  5. QUETIAPINE FUMARATE [Suspect]
     Active Substance: QUETIAPINE FUMARATE
     Indication: Bipolar I disorder

REACTIONS (7)
  - Exposure during pregnancy [Recovered/Resolved]
  - Live birth [Recovered/Resolved]
  - Mania [Recovered/Resolved]
  - Orthostatic hypotension [Recovered/Resolved]
  - Restlessness [Recovered/Resolved]
  - Therapeutic response decreased [Recovered/Resolved]
  - Drug ineffective [Recovered/Resolved]
